FAERS Safety Report 6519339-9 (Version None)
Quarter: 2009Q4

REPORT INFORMATION
  Report Type: 
  Country: None (occurrence: None)
  Receive Date: 20091228
  Receipt Date: 20091214
  Transmission Date: 20100525
  Serious: Yes (Other)
  Sender: FDA-Public Use
  Company Number: US-PFIZER INC-2009296385

PATIENT
  Age: 63 Year
  Sex: Male
  Weight: 115 kg

DRUGS (1)
  1. ATGAM [Suspect]
     Indication: APLASTIC ANAEMIA
     Dosage: 20 MG/KG, 1X/DAY
     Route: 042
     Dates: start: 20091104

REACTIONS (6)
  - BLOOD BILIRUBIN INCREASED [None]
  - HAEMOGLOBIN DECREASED [None]
  - PHLEBITIS [None]
  - PLATELET COUNT DECREASED [None]
  - RENAL FUNCTION TEST ABNORMAL [None]
  - WHITE BLOOD CELL COUNT DECREASED [None]
